FAERS Safety Report 9962468 (Version 1)
Quarter: 2014Q1

REPORT INFORMATION
  Report Type: Report from Study
  Country: US (occurrence: US)
  Receive Date: 20140305
  Receipt Date: 20140305
  Transmission Date: 20141002
  Serious: No
  Sender: FDA-Public Use
  Company Number: US-ABBVIE-13P-163-1110831-00

PATIENT
  Sex: Female

DRUGS (10)
  1. HUMIRA [Suspect]
     Indication: RHEUMATOID ARTHRITIS
     Dates: start: 20121103, end: 20130616
  2. ELAVIL [Concomitant]
     Indication: FIBROMYALGIA
     Dosage: AT BEDTIME
  3. SIMVASTATIN [Concomitant]
     Indication: BLOOD CHOLESTEROL INCREASED
     Dosage: 20MG DAILY
  4. METHOTREXATE [Concomitant]
     Indication: RHEUMATOID ARTHRITIS
  5. FOLIC ACID [Concomitant]
     Indication: RHEUMATOID ARTHRITIS
     Dosage: 1MG DAILY
  6. HYDROCODONE [Concomitant]
     Indication: PAIN
     Dosage: 2-4 TIMES DAILY
  7. GABAPENTIN [Concomitant]
     Indication: FIBROMYALGIA
  8. GABAPENTIN [Concomitant]
  9. CYCLOBENZAPRINE [Concomitant]
     Indication: FIBROMYALGIA
  10. CYCLOBENZAPRINE [Concomitant]

REACTIONS (3)
  - Feeling abnormal [Not Recovered/Not Resolved]
  - Pain [Not Recovered/Not Resolved]
  - Euphoric mood [Not Recovered/Not Resolved]
